FAERS Safety Report 24276205 (Version 1)
Quarter: 2024Q3

REPORT INFORMATION
  Report Type: Spontaneous
  Country: US (occurrence: US)
  Receive Date: 20240903
  Receipt Date: 20240903
  Transmission Date: 20241016
  Serious: No
  Sender: APOTEX
  Company Number: US-APOTEX-2023AP012847

PATIENT
  Age: 52 Year
  Sex: Female

DRUGS (5)
  1. ITRACONAZOLE [Suspect]
     Active Substance: ITRACONAZOLE
     Indication: Histoplasmosis
     Dosage: 200 MILLIGRAM, QD
     Route: 065
  2. ALECTINIB [Concomitant]
     Active Substance: ALECTINIB
     Indication: Non-small cell lung cancer
     Dosage: 600 MILLIGRAM, BID
     Route: 065
  3. ALECTINIB [Concomitant]
     Active Substance: ALECTINIB
     Dosage: 450 MILLIGRAM, BID
     Route: 065
  4. ALECTINIB [Concomitant]
     Active Substance: ALECTINIB
     Dosage: 300 MILLIGRAM, BID
     Route: 065
  5. FOLIC ACID [Concomitant]
     Active Substance: FOLIC ACID
     Indication: Product used for unknown indication
     Dosage: 1 MILLIGRAM, QD
     Route: 065

REACTIONS (1)
  - Drug intolerance [Unknown]
